FAERS Safety Report 14379799 (Version 2)
Quarter: 2018Q1

REPORT INFORMATION
  Report Type: Report from Study
  Country: US (occurrence: US)
  Receive Date: 20180112
  Receipt Date: 20180213
  Transmission Date: 20180509
  Serious: No
  Sender: FDA-Public Use
  Company Number: US-PUMA BIOTECHNOLOGY, LTD.-2017US013132

PATIENT

DRUGS (2)
  1. NERLYNX [Suspect]
     Active Substance: NERATINIB
     Dosage: 240 MG, DAILY
     Route: 048
     Dates: start: 20171020
  2. NERLYNX [Suspect]
     Active Substance: NERATINIB
     Indication: BREAST CANCER
     Dosage: 160 MG, DAILY
     Route: 048
     Dates: start: 20170922, end: 20171019

REACTIONS (4)
  - Asthenia [Unknown]
  - Diarrhoea [Not Recovered/Not Resolved]
  - Depressed mood [Unknown]
  - Fatigue [Unknown]
